FAERS Safety Report 25685550 (Version 2)
Quarter: 2025Q3

REPORT INFORMATION
  Report Type: Spontaneous
  Country: EU (occurrence: EU)
  Receive Date: 20250815
  Receipt Date: 20250828
  Transmission Date: 20251020
  Serious: Yes (Other)
  Sender: NOVARTIS
  Company Number: EU-002147023-NVSC2025DE127966

PATIENT
  Sex: Female

DRUGS (2)
  1. COSENTYX [Suspect]
     Active Substance: SECUKINUMAB
     Indication: Spondylitis
     Dosage: 300 MG, QMO
     Route: 065
     Dates: start: 202109, end: 20250806
  2. COSENTYX [Suspect]
     Active Substance: SECUKINUMAB
     Indication: Psoriatic arthropathy

REACTIONS (7)
  - Gastroenteritis Escherichia coli [Recovered/Resolved]
  - Pharyngitis [Recovering/Resolving]
  - Oropharyngeal pain [Recovering/Resolving]
  - Acne pustular [Not Recovered/Not Resolved]
  - Malaise [Recovering/Resolving]
  - Fatigue [Recovering/Resolving]
  - Genital herpes [Unknown]

NARRATIVE: CASE EVENT DATE: 20250721
